FAERS Safety Report 9649421 (Version 1)
Quarter: 2013Q4

REPORT INFORMATION
  Report Type: Spontaneous
  Country: US (occurrence: None)
  Receive Date: 20131018
  Receipt Date: 20131018
  Transmission Date: 20140711
  Serious: No
  Sender: FDA-Public Use
  Company Number: AEGR000080

PATIENT
  Age: 59 Year
  Sex: Female
  Weight: 102.9 kg

DRUGS (8)
  1. JUXTAPID (LOMITAPIDE) CAPSULE, 10MG [Suspect]
     Indication: TYPE IIA HYPERLIPIDAEMIA
     Route: 048
     Dates: start: 20130624
  2. VIVELLE (ESTRADIOL) [Concomitant]
  3. PROXAC (FLUOXETINE HYDROCHLORIDE) [Concomitant]
  4. WELLBUTRIN (BUPROPION HYDROCHLORIDE) [Concomitant]
  5. NYSTATIN (NYSTATIN) [Concomitant]
  6. BETAMETHASONE (BETAMETHASONE DIPROPIONATE) [Concomitant]
  7. SPIRONOLACTONE [Concomitant]
  8. LOSARTAN (LOSARTAN POTASSIUM) [Concomitant]

REACTIONS (2)
  - Diarrhoea [None]
  - Dehydration [None]
